FAERS Safety Report 7037302-9 (Version None)
Quarter: 2010Q4

REPORT INFORMATION
  Report Type: 
  Country: None (occurrence: None)
  Receive Date: 20101011
  Receipt Date: 20100929
  Transmission Date: 20110411
  Serious: Yes (Other)
  Sender: FDA-Public Use
  Company Number: US-ROCHE-730735

PATIENT
  Age: 68 Year
  Sex: Female

DRUGS (1)
  1. HERCEPTIN [Suspect]
     Indication: BREAST CANCER RECURRENT
     Dosage: DURATION: 2 YEARS.
     Route: 042

REACTIONS (5)
  - HYDROMETRA [None]
  - OVARIAN DISORDER [None]
  - OVARIAN ENLARGEMENT [None]
  - POSITRON EMISSION TOMOGRAM ABNORMAL [None]
  - UTERINE DISORDER [None]
